FAERS Safety Report 20066207 (Version 2)
Quarter: 2021Q4

REPORT INFORMATION
  Report Type: Spontaneous
  Country: JP (occurrence: JP)
  Receive Date: 20211114
  Receipt Date: 20211124
  Transmission Date: 20220304
  Serious: Yes (Death, Other)
  Sender: FDA-Public Use
  Company Number: JP-BRISTOL-MYERS SQUIBB COMPANY-BMS-2019-127103

PATIENT
  Age: 55 Year
  Sex: Male
  Weight: 124 kg

DRUGS (6)
  1. OPDIVO [Suspect]
     Active Substance: NIVOLUMAB
     Indication: Metastatic renal cell carcinoma
     Dosage: 240 MILLIGRAM
     Route: 041
     Dates: start: 20190308, end: 20190308
  2. OPDIVO [Suspect]
     Active Substance: NIVOLUMAB
     Dosage: 240 MILLIGRAM
     Route: 041
     Dates: start: 20190329, end: 20190329
  3. OPDIVO [Suspect]
     Active Substance: NIVOLUMAB
     Dosage: 240 MILLIGRAM
     Route: 041
     Dates: start: 20190426, end: 20190426
  4. YERVOY [Suspect]
     Active Substance: IPILIMUMAB
     Indication: Metastatic renal cell carcinoma
     Dosage: 100 MILLIGRAM
     Route: 041
     Dates: start: 20190308, end: 20190308
  5. YERVOY [Suspect]
     Active Substance: IPILIMUMAB
     Dosage: 100 MILLIGRAM
     Route: 041
     Dates: start: 20190329, end: 20190329
  6. YERVOY [Suspect]
     Active Substance: IPILIMUMAB
     Dosage: 100 MILLIGRAM
     Route: 041
     Dates: start: 20190426, end: 20190426

REACTIONS (1)
  - Death [Fatal]
